FAERS Safety Report 7559237-5 (Version None)
Quarter: 2011Q2

REPORT INFORMATION
  Report Type: 
  Country: None (occurrence: None)
  Receive Date: 20110621
  Receipt Date: 20110610
  Transmission Date: 20111010
  Serious: Yes (Other)
  Sender: FDA-Public Use
  Company Number: US-ELI_LILLY_AND_COMPANY-US201105004668

PATIENT
  Age: 50 Year
  Sex: Female

DRUGS (2)
  1. NICOTINE [Concomitant]
  2. FORTEO [Suspect]
     Indication: OSTEOPOROSIS
     Dosage: UNK, UNKNOWN
     Route: 065

REACTIONS (4)
  - ARTHRALGIA [None]
  - OBSTRUCTIVE AIRWAYS DISORDER [None]
  - WEIGHT DECREASED [None]
  - ACUTE RESPIRATORY FAILURE [None]
